FAERS Safety Report 9774808 (Version 4)
Quarter: 2014Q2

REPORT INFORMATION
  Report Type: Report from Study
  Country: DE (occurrence: DE)
  Receive Date: 20131220
  Receipt Date: 20140604
  Transmission Date: 20141212
  Serious: Yes (Hospitalization, Other)
  Sender: FDA-Public Use
  Company Number: DE-MILLENNIUM PHARMACEUTICALS, INC.-2013JNJ001292

PATIENT
  Sex: 0

DRUGS (2)
  1. VELCADE [Suspect]
     Indication: PLASMA CELL MYELOMA
     Dosage: 2.93 MG, CYCLIC
     Route: 058
     Dates: start: 20130923, end: 20131121
  2. TARGIN [Concomitant]
     Indication: PAIN
     Dosage: UNK
     Dates: start: 201310, end: 20131127

REACTIONS (2)
  - Atrial fibrillation [Unknown]
  - Convulsion [Recovered/Resolved]
